FAERS Safety Report 5250636-3 (Version None)
Quarter: 2007Q1

REPORT INFORMATION
  Report Type: 
  Country: None (occurrence: None)
  Receive Date: 20070228
  Receipt Date: 20060609
  Transmission Date: 20070707
  Serious: No
  Sender: FDA-Public Use
  Company Number: US-GLAXOSMITHKLINE-A0608481A

PATIENT
  Age: 49 Year
  Sex: Female

DRUGS (2)
  1. LAMICTAL [Suspect]
     Indication: BIPOLAR DISORDER
     Dosage: 25MG PER DAY
     Route: 048
     Dates: start: 20060602, end: 20060609
  2. MICROGESTIN FE 1/20 [Concomitant]

REACTIONS (7)
  - DIARRHOEA [None]
  - INSOMNIA [None]
  - MALAISE [None]
  - MUSCLE TWITCHING [None]
  - PRURITUS [None]
  - RASH [None]
  - RESTLESSNESS [None]
